FAERS Safety Report 18756501 (Version 1)
Quarter: 2021Q1

REPORT INFORMATION
  Report Type: Spontaneous
  Country: CA (occurrence: CA)
  Receive Date: 20210119
  Receipt Date: 20210119
  Transmission Date: 20210419
  Serious: Yes (Other)
  Sender: FDA-Public Use
  Company Number: CA-PFIZER INC-2021024910

PATIENT
  Sex: Female

DRUGS (2)
  1. RITUXIMAB. [Suspect]
     Active Substance: RITUXIMAB
     Dosage: UNK
     Route: 042
  2. FILGRASTIM [Suspect]
     Active Substance: FILGRASTIM
     Indication: LYMPHOMA
     Dosage: 300 UG, UNK
     Route: 058

REACTIONS (3)
  - Drug hypersensitivity [Unknown]
  - Dyspnoea [Unknown]
  - Anaphylactic reaction [Unknown]
